FAERS Safety Report 24104558 (Version 1)
Quarter: 2024Q3

REPORT INFORMATION
  Report Type: Spontaneous
  Country: US (occurrence: None)
  Receive Date: 20240716
  Receipt Date: 20240716
  Transmission Date: 20241017
  Serious: Yes (Other)
  Sender: Public
  Company Number: None

PATIENT
  Sex: Female
  Weight: 65.7 kg

DRUGS (14)
  1. SOTYKTU [Suspect]
     Active Substance: DEUCRAVACITINIB
     Indication: Psoriasis
     Dosage: FREQUENCY : DAILY;?
     Route: 048
     Dates: start: 20231101, end: 20240515
  2. Butalb/acetaminophen/caffeine [Concomitant]
     Dates: start: 20230130
  3. CITALOPRAM [Concomitant]
     Active Substance: CITALOPRAM\CITALOPRAM HYDROBROMIDE
     Dates: start: 20240221
  4. DOXYCYCLINE [Concomitant]
     Active Substance: DOXYCYCLINE\DOXYCYCLINE HYCLATE
     Dates: start: 20231206, end: 20231216
  5. TRULICITY [Concomitant]
     Active Substance: DULAGLUTIDE
     Dates: start: 20231010
  6. ESZOPICLONE [Concomitant]
     Active Substance: ESZOPICLONE
     Dates: start: 20230908
  7. EZETIMIBE [Concomitant]
     Active Substance: EZETIMIBE
     Dates: start: 20230914
  8. GENTAMICIN [Concomitant]
     Active Substance: GENTAMICIN
     Dates: start: 20231117, end: 20231127
  9. LORAZEPAM [Concomitant]
     Active Substance: LORAZEPAM
     Dates: start: 20240219, end: 20240315
  10. METFORMIN [Concomitant]
     Active Substance: METFORMIN HYDROCHLORIDE
  11. PROPRANOLOL [Concomitant]
     Active Substance: PROPRANOLOL HYDROCHLORIDE
  12. ROSUVASTATIN [Concomitant]
     Active Substance: ROSUVASTATIN
  13. SPIRONOLACTONE [Concomitant]
     Active Substance: SPIRONOLACTONE
  14. MOUNJARO [Concomitant]
     Active Substance: TIRZEPATIDE
     Dates: start: 20240205

REACTIONS (1)
  - Basal cell carcinoma [None]
